FAERS Safety Report 6327516-5 (Version None)
Quarter: 2009Q3

REPORT INFORMATION
  Report Type: 
  Country: None (occurrence: None)
  Receive Date: 20090825
  Receipt Date: 20090814
  Transmission Date: 20100115
  Serious: Yes (Hospitalization, Other)
  Sender: FDA-Public Use
  Company Number: PHHY2009AU12476

PATIENT
  Sex: Male
  Weight: 114 kg

DRUGS (2)
  1. CLOZARIL [Suspect]
     Indication: SCHIZOPHRENIA
     Dosage: 175 MG, UNK
     Route: 048
     Dates: start: 20050708, end: 20090806
  2. RISPERIDONE [Concomitant]
     Dosage: 3 MG

REACTIONS (8)
  - BLOOD CREATINE PHOSPHOKINASE MB INCREASED [None]
  - ELECTROCARDIOGRAM QT PROLONGED [None]
  - NON-CARDIAC CHEST PAIN [None]
  - PARANOIA [None]
  - SCHIZOPHRENIA [None]
  - SINUS TACHYCARDIA [None]
  - TACHYCARDIA [None]
  - WEIGHT INCREASED [None]
